FAERS Safety Report 25757133 (Version 1)
Quarter: 2025Q3

REPORT INFORMATION
  Report Type: Report from Study
  Country: CO (occurrence: CO)
  Receive Date: 20250903
  Receipt Date: 20250903
  Transmission Date: 20251020
  Serious: Yes (Hospitalization, Other)
  Sender: ALEXION PHARMACEUTICALS
  Company Number: CO-AstraZeneca-CH-00941121A

PATIENT
  Age: 92 Year
  Sex: Female

DRUGS (1)
  1. SODIUM ZIRCONIUM CYCLOSILICATE [Suspect]
     Active Substance: SODIUM ZIRCONIUM CYCLOSILICATE
     Indication: Hyperkalaemia
     Dosage: 5 GRAM, QD
     Dates: start: 20250724

REACTIONS (4)
  - Cardiac disorder [Unknown]
  - Oxygen saturation decreased [Unknown]
  - Respiratory distress [Unknown]
  - Blood potassium increased [Unknown]

NARRATIVE: CASE EVENT DATE: 20250825
